FAERS Safety Report 7529883-3 (Version None)
Quarter: 2011Q2

REPORT INFORMATION
  Report Type: 
  Country: None (occurrence: None)
  Receive Date: 20110607
  Receipt Date: 20110603
  Transmission Date: 20111010
  Serious: Yes (Hospitalization, Other)
  Sender: FDA-Public Use
  Company Number: US-BRISTOL-MYERS SQUIBB COMPANY-15803307

PATIENT
  Sex: Female
  Weight: 136 kg

DRUGS (1)
  1. ABILIFY [Suspect]
     Dosage: ON AND OFF ABILIFY FOR ABOUT 2 YEARS

REACTIONS (2)
  - WEIGHT INCREASED [None]
  - FLUID RETENTION [None]
